FAERS Safety Report 4623518-5 (Version None)
Quarter: 2005Q1

REPORT INFORMATION
  Report Type: 
  Country: None (occurrence: None)
  Receive Date: 20050330
  Receipt Date: 20050308
  Transmission Date: 20050727
  Serious: Yes (Hospitalization)
  Sender: FDA-Public Use
  Company Number: 602307

PATIENT
  Age: 82 Year
  Sex: Female

DRUGS (3)
  1. POLYGAM [Suspect]
  2. SOLU-CORTEF [Concomitant]
  3. TYLENOL (CAPLET) [Concomitant]

REACTIONS (10)
  - BLOOD ALBUMIN INCREASED [None]
  - BLOOD SODIUM INCREASED [None]
  - BLOOD UREA INCREASED [None]
  - CEREBRAL ARTERY OCCLUSION [None]
  - CEREBRAL INFARCTION [None]
  - DEHYDRATION [None]
  - GLOBULINS INCREASED [None]
  - HAEMATOCRIT INCREASED [None]
  - ISCHAEMIC STROKE [None]
  - PLATELET COUNT INCREASED [None]
